FAERS Safety Report 10010176 (Version 1)
Quarter: 2014Q1

REPORT INFORMATION
  Report Type: Spontaneous
  Country: US (occurrence: US)
  Receive Date: 20140312
  Receipt Date: 20140312
  Transmission Date: 20141002
  Serious: No
  Sender: FDA-Public Use
  Company Number: US-INCYTE CORPORATION-2013IN001681

PATIENT
  Sex: Female

DRUGS (4)
  1. JAKAFI [Suspect]
     Indication: MYELOFIBROSIS
     Dosage: 15 MG, BID
     Route: 048
  2. AMBIEN [Concomitant]
  3. HYDROCODONE [Concomitant]
  4. ASPIRIN [Concomitant]

REACTIONS (1)
  - Hospice care [Not Recovered/Not Resolved]
